FAERS Safety Report 10168469 (Version 2)
Quarter: 2014Q2

REPORT INFORMATION
  Report Type: Report from Study
  Country: US (occurrence: US)
  Receive Date: 20140513
  Receipt Date: 20140513
  Transmission Date: 20141212
  Serious: Yes (Other)
  Sender: FDA-Public Use
  Company Number: US-IPSEN BIOPHARMACEUTICALS, INC.-2013-4293

PATIENT
  Age: 61 Year
  Sex: Female
  Weight: 68 kg

DRUGS (2)
  1. SOMATULINE DEPOT INJECTION (120MG) [Suspect]
     Indication: ACROMEGALY
     Dosage: 120 MG
     Route: 058
     Dates: start: 20130627, end: 20130919
  2. LIDOCAINE [Concomitant]
     Indication: PRODUCT USED FOR UNKNOWN INDICATION
     Dosage: NOT REPORTED
     Route: 061

REACTIONS (7)
  - Loss of consciousness [Recovered/Resolved]
  - Head injury [Recovered/Resolved]
  - Hyperhidrosis [Recovered/Resolved]
  - Abdominal pain [Recovered/Resolved]
  - Diarrhoea [Recovered/Resolved]
  - Dizziness [Recovered/Resolved]
  - Fatigue [Recovered/Resolved]
